FAERS Safety Report 17183427 (Version 1)
Quarter: 2019Q4

REPORT INFORMATION
  Report Type: Report from Study
  Country: US (occurrence: US)
  Receive Date: 20191220
  Receipt Date: 20191220
  Transmission Date: 20200122
  Serious: Yes (Other)
  Sender: FDA-Public Use
  Company Number: US-ROCHE-2499866

PATIENT
  Age: 81 Year
  Sex: Male

DRUGS (1)
  1. BEVACIZUMAB. [Suspect]
     Active Substance: BEVACIZUMAB
     Indication: MALIGNANT MELANOMA
     Route: 065

REACTIONS (12)
  - Abdominal pain [Unknown]
  - Fatigue [Unknown]
  - Blood creatinine increased [Unknown]
  - Alanine aminotransferase increased [Unknown]
  - Confusional state [Unknown]
  - Aspartate aminotransferase increased [Unknown]
  - Hyperkalaemia [Unknown]
  - Ill-defined disorder [Unknown]
  - Dehydration [Unknown]
  - Hyponatraemia [Unknown]
  - Diarrhoea [Unknown]
  - Blood bilirubin increased [Unknown]
